FAERS Safety Report 4611228-X (Version None)
Quarter: 2005Q1

REPORT INFORMATION
  Report Type: 
  Country: None (occurrence: None)
  Receive Date: 20050315
  Receipt Date: 20050315
  Transmission Date: 20050727
  Serious: Yes (Hospitalization)
  Sender: FDA-Public Use
  Company Number: None

PATIENT
  Age: 65 Year
  Sex: Female

DRUGS (2)
  1. CELEBREX [Suspect]
     Indication: OSTEOARTHRITIS
     Dosage: 200 MG 1 DAILY
  2. VIOXX [Suspect]
     Indication: OSTEOARTHRITIS
     Dosage: 1 DAILY
     Dates: start: 20041201

REACTIONS (1)
  - CEREBROVASCULAR ACCIDENT [None]
